FAERS Safety Report 21519728 (Version 2)
Quarter: 2022Q4

REPORT INFORMATION
  Report Type: Spontaneous
  Country: US (occurrence: None)
  Receive Date: 20221028
  Receipt Date: 20221130
  Transmission Date: 20230112
  Serious: No
  Sender: FDA-Public Use
  Company Number: 2022A351919

PATIENT
  Age: 26658 Day
  Sex: Male
  Weight: 81.6 kg

DRUGS (5)
  1. EVUSHELD [Suspect]
     Active Substance: CILGAVIMAB\TIXAGEVIMAB
     Indication: Chronic myeloid leukaemia
     Dosage: 300 MG (300 MG TIXAGEVIMAB/300 MG CILGAVIMAB), 3ML, EVERY SIX MONTHS
     Route: 030
     Dates: start: 20220524
  2. EVUSHELD [Suspect]
     Active Substance: CILGAVIMAB\TIXAGEVIMAB
     Indication: Chronic myeloid leukaemia
     Dosage: 300 MG (300 MG TIXAGEVIMAB/300 MG CILGAVIMAB), 3ML,
     Route: 030
     Dates: start: 20221019
  3. BICILLIN Q [Concomitant]
     Dosage: DOSE IS 1 MILLION, 200 THOUSAND PER 2 ML
     Route: 065
     Dates: start: 202208
  4. BICILLIN Q [Concomitant]
     Dosage: DOSE IS 1 MILLION, 200 THOUSAND PER 2 ML
     Route: 065
     Dates: start: 202209
  5. BICILLIN Q [Concomitant]
     Dosage: DOSE IS 1 MILLION, 200 THOUSAND PER 2 ML
     Route: 065
     Dates: start: 202210

REACTIONS (1)
  - Inappropriate schedule of product administration [Unknown]

NARRATIVE: CASE EVENT DATE: 20221019
